FAERS Safety Report 8070910-5 (Version None)
Quarter: 2012Q1

REPORT INFORMATION
  Report Type: 
  Country: None (occurrence: None)
  Receive Date: 20120125
  Receipt Date: 20120119
  Transmission Date: 20120608
  Serious: Yes (Disabling, Other)
  Sender: FDA-Public Use
  Company Number: US-PFIZER INC-2012016495

PATIENT
  Sex: Female
  Weight: 79.365 kg

DRUGS (17)
  1. SEROQUEL [Concomitant]
     Indication: NEUROPATHY PERIPHERAL
  2. KLONOPIN [Concomitant]
     Indication: ARTHRITIS
  3. KLONOPIN [Concomitant]
     Indication: NEUROPATHY PERIPHERAL
  4. PERCOCET [Concomitant]
     Indication: FIBROMYALGIA
     Dosage: UNK
  5. FLEXERIL [Concomitant]
     Indication: FIBROMYALGIA
     Dosage: UNK
  6. LYRICA [Suspect]
     Indication: NEUROPATHY PERIPHERAL
  7. SEROQUEL [Concomitant]
     Indication: FIBROMYALGIA
     Dosage: UNK
  8. SEROQUEL [Concomitant]
     Indication: ARTHRITIS
  9. OXYCONTIN [Concomitant]
     Indication: NEUROPATHY PERIPHERAL
  10. KLONOPIN [Concomitant]
     Indication: FIBROMYALGIA
     Dosage: UNK
  11. FLEXERIL [Concomitant]
     Indication: NEUROPATHY PERIPHERAL
  12. PERCOCET [Concomitant]
     Indication: ARTHRITIS
  13. OXYCONTIN [Concomitant]
     Indication: ARTHRITIS
  14. FLEXERIL [Concomitant]
     Indication: ARTHRITIS
  15. LYRICA [Suspect]
     Indication: FIBROMYALGIA
     Dosage: 150 MG, 5X/DAY
     Dates: end: 20110101
  16. PERCOCET [Concomitant]
     Indication: NEUROPATHY PERIPHERAL
  17. OXYCONTIN [Concomitant]
     Indication: FIBROMYALGIA
     Dosage: UNK

REACTIONS (2)
  - ABASIA [None]
  - PAIN [None]
